FAERS Safety Report 9515862 (Version 1)
Quarter: 2013Q3

REPORT INFORMATION
  Report Type: Spontaneous
  Country: IT (occurrence: IT)
  Receive Date: 20130911
  Receipt Date: 20130911
  Transmission Date: 20140515
  Serious: Yes (Hospitalization, Other)
  Sender: FDA-Public Use
  Company Number: IT-MERCK-1309ITA003861

PATIENT
  Age: 63 Year
  Sex: Male

DRUGS (1)
  1. SINEMET 100MG + 25MG COMPRESSE [Suspect]
     Indication: TREMOR
     Dosage: 100 MG+25MG
     Route: 048
     Dates: start: 201111, end: 20130614

REACTIONS (1)
  - Pancreatitis [Recovered/Resolved]
